FAERS Safety Report 24927670 (Version 1)
Quarter: 2025Q1

REPORT INFORMATION
  Report Type: Spontaneous
  Country: BR (occurrence: BR)
  Receive Date: 20250205
  Receipt Date: 20250205
  Transmission Date: 20250409
  Serious: Yes (Other)
  Sender: MERZ
  Company Number: BR-MERZ PHARMACEUTICALS, LLC-ACO_176410_2025

PATIENT

DRUGS (3)
  1. DALFAMPRIDINE [Suspect]
     Active Substance: DALFAMPRIDINE
     Indication: Locomotive syndrome
     Dosage: 10 MILLIGRAM, QD
     Route: 048
  2. OCRELIZUMABUM [Concomitant]
     Indication: Multiple sclerosis
     Route: 065
  3. PURAN [Concomitant]
     Active Substance: LEVOTHYROXINE SODIUM
     Indication: Hypothyroidism
     Route: 065

REACTIONS (6)
  - Loss of control of legs [Not Recovered/Not Resolved]
  - Muscle spasms [Unknown]
  - Blood pressure increased [Unknown]
  - Glucose tolerance impaired [Unknown]
  - Product dose omission issue [Unknown]
  - Balance disorder [Not Recovered/Not Resolved]
